FAERS Safety Report 24299397 (Version 2)
Quarter: 2024Q4

REPORT INFORMATION
  Report Type: Spontaneous
  Country: BR (occurrence: BR)
  Receive Date: 20240909
  Receipt Date: 20241001
  Transmission Date: 20250115
  Serious: Yes (Other)
  Sender: TEIKOKU
  Company Number: BR-GRUNENTHAL-2024-124519

PATIENT
  Age: 44 Year
  Sex: Female
  Weight: 66 kg

DRUGS (9)
  1. LIDOCAINE [Suspect]
     Active Substance: LIDOCAINE
     Indication: Pain in extremity
     Dosage: 2 DOSAGE FORM, 1/DAY
     Route: 061
     Dates: start: 20240822, end: 20240823
  2. DIPYRONE [Concomitant]
     Active Substance: DIPYRONE
     Indication: Pain in extremity
     Dosage: UNK
  3. DIPYRONE [Concomitant]
     Active Substance: DIPYRONE
     Dosage: UNK
  4. ACETAMINOPHEN [Concomitant]
     Active Substance: ACETAMINOPHEN
     Indication: Pain in extremity
     Dosage: UNK
  5. ACETAMINOPHEN [Concomitant]
     Active Substance: ACETAMINOPHEN
     Dosage: UNK
  6. TRAMADOL [Concomitant]
     Active Substance: TRAMADOL
     Indication: Pain
     Dosage: UNK
     Dates: start: 20240823
  7. DIPYRONE [Concomitant]
     Active Substance: DIPYRONE
     Indication: Pain
     Dosage: UNK
     Dates: start: 20240823
  8. KETOPROFEN [Concomitant]
     Active Substance: KETOPROFEN
     Indication: Pain
     Dosage: UNK
     Dates: start: 20240823
  9. DECADRON [Concomitant]
     Active Substance: DEXAMETHASONE
     Indication: Pain
     Dosage: UNK
     Dates: start: 20240823

REACTIONS (6)
  - Pain [Not Recovered/Not Resolved]
  - Application site pain [Not Recovered/Not Resolved]
  - Product adhesion issue [Unknown]
  - Drug ineffective [Not Recovered/Not Resolved]
  - Application site haemorrhage [Not Recovered/Not Resolved]
  - Application site erythema [Not Recovered/Not Resolved]

NARRATIVE: CASE EVENT DATE: 20240822
